FAERS Safety Report 5866208-3 (Version None)
Quarter: 2008Q3

REPORT INFORMATION
  Report Type: 
  Country: None (occurrence: None)
  Receive Date: 20080829
  Receipt Date: 20080818
  Transmission Date: 20090109
  Serious: Yes (Other)
  Sender: FDA-Public Use
  Company Number: BR-PFIZER INC-2008069774

PATIENT
  Sex: Female
  Weight: 72 kg

DRUGS (3)
  1. DOSTINEX [Suspect]
     Indication: NEOPLASM
     Route: 048
  2. DOSTINEX [Suspect]
     Indication: BLOOD PROLACTIN INCREASED
  3. LEVOTHYROXINE SODIUM [Concomitant]
     Route: 065

REACTIONS (8)
  - BLOOD THYROID STIMULATING HORMONE INCREASED [None]
  - DYSPNOEA [None]
  - INFLUENZA LIKE ILLNESS [None]
  - MALAISE [None]
  - NAUSEA [None]
  - TACHYCARDIA [None]
  - THYROXINE INCREASED [None]
  - VOMITING [None]
